FAERS Safety Report 5715903-5 (Version None)
Quarter: 2008Q2

REPORT INFORMATION
  Report Type: 
  Country: None (occurrence: None)
  Receive Date: 20080424
  Receipt Date: 20080414
  Transmission Date: 20081010
  Serious: Yes (Other)
  Sender: FDA-Public Use
  Company Number: US-BAYER-200812409NA

PATIENT
  Sex: Female

DRUGS (3)
  1. AVELOX [Suspect]
     Indication: PNEUMONIA
     Route: 048
  2. LASIX [Concomitant]
     Indication: HYPERTENSION
  3. ZESTRIL [Concomitant]
     Indication: HYPERTENSION

REACTIONS (2)
  - PULMONARY OEDEMA [None]
  - SWELLING [None]
